FAERS Safety Report 9753729 (Version 1)
Quarter: 2013Q4

REPORT INFORMATION
  Report Type: Spontaneous
  Country: US (occurrence: US)
  Receive Date: 20131213
  Receipt Date: 20131213
  Transmission Date: 20140711
  Serious: No
  Sender: FDA-Public Use
  Company Number: US-GILEAD-2010-0026603

PATIENT
  Sex: Male

DRUGS (14)
  1. LETAIRIS [Suspect]
     Indication: PULMONARY ARTERIAL HYPERTENSION
     Route: 048
     Dates: start: 20090303
  2. MICARDIS [Concomitant]
  3. TOPROL XL [Concomitant]
  4. AMIODARONE HCL [Concomitant]
  5. DIGOXIN [Concomitant]
  6. FUROSEMIDE [Concomitant]
  7. FOLIC ACID [Concomitant]
  8. FOSAMAX [Concomitant]
  9. PREDNISONE [Concomitant]
  10. PRILOSEC [Concomitant]
  11. FERROUS SULFATE [Concomitant]
  12. ADVAIR [Concomitant]
  13. COMBIVENT [Concomitant]
  14. VITAMIN B6 [Concomitant]

REACTIONS (2)
  - Dizziness [Unknown]
  - Dizziness [Unknown]
